FAERS Safety Report 6735523-3 (Version None)
Quarter: 2010Q2

REPORT INFORMATION
  Report Type: 
  Country: None (occurrence: None)
  Receive Date: 20100521
  Receipt Date: 20100513
  Transmission Date: 20101027
  Serious: Yes (Life-Threatening, Hospitalization)
  Sender: FDA-Public Use
  Company Number: US-ASTRAZENECA-2010SE22813

PATIENT
  Age: 55 Year
  Sex: Female

DRUGS (4)
  1. CUBICIN [Suspect]
     Indication: OSTEOMYELITIS
     Route: 042
  2. CUBICIN [Suspect]
     Indication: CELLULITIS
     Route: 042
  3. MEROPENEM [Suspect]
     Indication: OSTEOMYELITIS
     Route: 042
  4. MEROPENEM [Suspect]
     Indication: CELLULITIS
     Route: 042

REACTIONS (2)
  - INTERSTITIAL LUNG DISEASE [None]
  - RESPIRATORY DISTRESS [None]
